FAERS Safety Report 6108973-6 (Version None)
Quarter: 2009Q1

REPORT INFORMATION
  Report Type: 
  Country: None (occurrence: None)
  Receive Date: 20090306
  Receipt Date: 20090107
  Transmission Date: 20090719
  Serious: Yes (Death, Hospitalization)
  Sender: FDA-Public Use
  Company Number: DSA_62444_2009

PATIENT
  Age: 24 Year
  Sex: Male

DRUGS (3)
  1. DIAZEPAM [Suspect]
     Indication: SEDATION
     Dosage: DF INTRAMUSCULAR
  2. ASPIRIN [Suspect]
     Indication: DRUG USE FOR UNKNOWN INDICATION
     Dosage: BETWEEN 100 AND 300 TABLETS ORAL
     Route: 048
  3. HALOPERIDOL [Suspect]
     Indication: SEDATION
     Dosage: DF

REACTIONS (32)
  - AGITATION [None]
  - ARTERIOSCLEROSIS CORONARY ARTERY [None]
  - BELLIGERENCE [None]
  - BLOOD CHLORIDE INCREASED [None]
  - BLOOD CREATININE INCREASED [None]
  - BLOOD GLUCOSE INCREASED [None]
  - BLOOD PH DECREASED [None]
  - BLOOD POTASSIUM INCREASED [None]
  - BLOOD SODIUM INCREASED [None]
  - BLOOD UREA INCREASED [None]
  - BRADYCARDIA [None]
  - BREATH SOUNDS ABNORMAL [None]
  - CARDIAC ARREST [None]
  - COMPLETED SUICIDE [None]
  - DISORIENTATION [None]
  - HAEMODIALYSIS [None]
  - HEART RATE INCREASED [None]
  - HEPATOSPLENOMEGALY [None]
  - HYPERHIDROSIS [None]
  - INTERNATIONAL NORMALISED RATIO DECREASED [None]
  - LIVER DISORDER [None]
  - LUNG DISORDER [None]
  - PO2 INCREASED [None]
  - POISONING DELIBERATE [None]
  - PULMONARY CONGESTION [None]
  - PULMONARY OEDEMA [None]
  - RESPIRATORY RATE INCREASED [None]
  - SOMNOLENCE [None]
  - TACHYPNOEA [None]
  - THERAPEUTIC AGENT TOXICITY [None]
  - VENTRICULAR HYPERTROPHY [None]
  - VENTRICULAR TACHYCARDIA [None]
